FAERS Safety Report 19389641 (Version 1)
Quarter: 2021Q2

REPORT INFORMATION
  Report Type: Spontaneous
  Country: US (occurrence: US)
  Receive Date: 20210607
  Receipt Date: 20210607
  Transmission Date: 20210717
  Serious: Yes (Hospitalization)
  Sender: FDA-Public Use
  Company Number: None

PATIENT
  Age: 62 Year
  Sex: Female

DRUGS (22)
  1. CLONAZEP [Concomitant]
  2. OXYCODONE [Concomitant]
     Active Substance: OXYCODONE
  3. PREDNISONE. [Concomitant]
     Active Substance: PREDNISONE
  4. SLOW ?WAG [Concomitant]
  5. BENLYSTA [Suspect]
     Active Substance: BELIMUMAB
     Indication: SYSTEMIC LUPUS ERYTHEMATOSUS
     Dosage: OTHER FREQUENCY:ONCE A WEEK;?
     Route: 058
  6. ROSUVASTATIN. [Concomitant]
     Active Substance: ROSUVASTATIN
  7. ADZENYS XR [Concomitant]
  8. SUMATRIPTAN. [Concomitant]
     Active Substance: SUMATRIPTAN
  9. BREO ELLIPTA INHA [Concomitant]
  10. AMILORIDE [Concomitant]
     Active Substance: AMILORIDE
  11. HYDROXYCLOR [Concomitant]
  12. LEFLUNOMIDE. [Concomitant]
     Active Substance: LEFLUNOMIDE
  13. NAMUMETONE [Concomitant]
  14. PANTOPRAZOLE [Concomitant]
     Active Substance: PANTOPRAZOLE
  15. RELISTOR [Concomitant]
     Active Substance: METHYLNALTREXONE BROMIDE
  16. ALBUTEROL. [Concomitant]
     Active Substance: ALBUTEROL
  17. DICYCLOMINE [Concomitant]
     Active Substance: DICYCLOMINE HYDROCHLORIDE
  18. FOLIC ACID. [Concomitant]
     Active Substance: FOLIC ACID
  19. NITROFURANTN [Concomitant]
     Active Substance: NITROFURANTOIN
  20. GABAPENTIN. [Concomitant]
     Active Substance: GABAPENTIN
  21. LEVOTHYROXINE. [Concomitant]
     Active Substance: LEVOTHYROXINE
  22. ONDANSETRON [Concomitant]
     Active Substance: ONDANSETRON

REACTIONS (3)
  - Therapy interrupted [None]
  - Hip fracture [None]
  - Osteomyelitis [None]

NARRATIVE: CASE EVENT DATE: 20210416
